FAERS Safety Report 10386078 (Version 1)
Quarter: 2014Q1

REPORT INFORMATION
  Report Type: Spontaneous
  Country: US (occurrence: None)
  Receive Date: 20140306
  Receipt Date: 20140306
  Transmission Date: 20141002
  Serious: Yes (Other)
  Sender: FDA-Public Use
  Company Number: 163-21880-13082648

PATIENT
  Age: 68 Year
  Sex: Male
  Weight: 86.6 kg

DRUGS (13)
  1. REVLIMID [Suspect]
     Indication: PLASMA CELL MYELOMA
     Route: 048
     Dates: start: 201011
  2. VITAMIN D (ERGOCALCIFEROL) [Concomitant]
  3. FISH OIL (FISH OIL) [Concomitant]
  4. COMPLETE MULTIVITAMIN (MULTIVITAMINS) [Concomitant]
  5. VELCADE (BORTEZOMIB) [Concomitant]
  6. DEXAMETHASONE (DEXAMETHASONE) [Concomitant]
  7. ACYCLOVIR (ACICLOVIR) [Concomitant]
  8. SERTRALINE HCL (SERTRALINE HYDROCHLORIDE) [Concomitant]
  9. NEXIUM DR (ESOMEPRAZOLE) [Concomitant]
  10. INDAPAMIDE (B I PREDONIUM) [Concomitant]
  11. ASPIRIN (ACETYLSALICYLIC ACID) [Concomitant]
  12. EQL MAGNESIUM OXIDE (MAGNESIUM OXIDE) [Concomitant]
  13. VITAMIN B-12 (CYANOCOBALAMIN) [Concomitant]

REACTIONS (1)
  - Thrombosis [None]
